FAERS Safety Report 14010896 (Version 3)
Quarter: 2018Q2

REPORT INFORMATION
  Report Type: Spontaneous
  Country: US (occurrence: US)
  Receive Date: 20170926
  Receipt Date: 20180502
  Transmission Date: 20180711
  Serious: Yes (Hospitalization)
  Sender: FDA-Public Use
  Company Number: US-PFIZER INC-2017013693

PATIENT
  Age: 22 Year
  Sex: Female

DRUGS (2)
  1. LYRICA [Suspect]
     Active Substance: PREGABALIN
     Indication: EPILEPSY
     Dosage: 150 MG, 2X/DAY [ONE WHITE CAPSULE BY MOUTH IN THE MORNING AND ONE CAPSULE IN THE EVENING]
     Route: 048
     Dates: start: 2015
  2. LYRICA [Suspect]
     Active Substance: PREGABALIN
     Indication: SEIZURE
     Dosage: 450 MG, DAILY(150 MG IN MORNING, 300 MG AT NIGHT)
     Dates: start: 2016

REACTIONS (4)
  - Coma [Not Recovered/Not Resolved]
  - Nausea [Unknown]
  - Headache [Unknown]
  - Drug ineffective [Recovered/Resolved]

NARRATIVE: CASE EVENT DATE: 20170919
